FAERS Safety Report 18270729 (Version 3)
Quarter: 2021Q1

REPORT INFORMATION
  Report Type: Report from Study
  Country: None (occurrence: US)
  Receive Date: 20200916
  Receipt Date: 20210113
  Transmission Date: 20210419
  Serious: Yes (Other)
  Sender: FDA-Public Use
  Company Number: US-ABBVIE-20K-163-3566762-00

PATIENT
  Age: 82 Year
  Sex: Female

DRUGS (2)
  1. RINVOQ [Suspect]
     Active Substance: UPADACITINIB
     Route: 048
  2. RINVOQ [Suspect]
     Active Substance: UPADACITINIB
     Indication: RHEUMATOID ARTHRITIS
     Route: 048

REACTIONS (4)
  - Spinal operation [Recovering/Resolving]
  - Osteomalacia [Not Recovered/Not Resolved]
  - Osteoporosis [Unknown]
  - Mobility decreased [Unknown]

NARRATIVE: CASE EVENT DATE: 202007
